FAERS Safety Report 4427235-6 (Version None)
Quarter: 2004Q3

REPORT INFORMATION
  Report Type: 
  Country: None (occurrence: None)
  Receive Date: 20040817
  Receipt Date: 20040614
  Transmission Date: 20050211
  Serious: Yes (Death, Other)
  Sender: FDA-Public Use
  Company Number: PHBS2004BE07989

PATIENT
  Age: 76 Year

DRUGS (4)
  1. ZOMETA [Suspect]
     Indication: MULTIPLE MYELOMA
     Dosage: 4 MG, UNK
     Route: 042
     Dates: start: 20021021, end: 20040311
  2. THALIDOMIDE [Concomitant]
     Dosage: 50 MG/D
     Route: 048
  3. DEXAMETHASONE [Concomitant]
  4. VINCRISTINE + ADRIAMYCIN + DEXAMETHASONE [Concomitant]

REACTIONS (2)
  - DISEASE PROGRESSION [None]
  - OSTEONECROSIS [None]
